FAERS Safety Report 7214366-0 (Version None)
Quarter: 2010Q4

REPORT INFORMATION
  Report Type: 
  Country: None (occurrence: None)
  Receive Date: 20101126
  Receipt Date: 20100622
  Transmission Date: 20110411
  Serious: Yes (Other)
  Sender: FDA-Public Use
  Company Number: WAES 1006USA03829

PATIENT
  Age: 60 Year
  Sex: Female

DRUGS (6)
  1. FOSAMAX [Suspect]
     Indication: OSTEOPENIA
     Dosage: 70 MG/WKY/PO
     Route: 048
     Dates: start: 20080401, end: 20081113
  2. ACTONEL [Suspect]
     Indication: OSTEOPENIA
     Dosage: 35 MG
     Dates: start: 20070816, end: 20081113
  3. ALENDRONATE SODIUM [Suspect]
     Dosage: 70 MG
     Dates: start: 20080409, end: 20081113
  4. LEVOTHROID [Concomitant]
  5. STRATTERA [Concomitant]
  6. HORMONES (UNSPECIFIED) [Concomitant]

REACTIONS (6)
  - ABSCESS [None]
  - IMPAIRED HEALING [None]
  - LYMPHADENOPATHY [None]
  - ORAL INFECTION [None]
  - OSTEONECROSIS [None]
  - TOOTH DISORDER [None]
